FAERS Safety Report 15859440 (Version 1)
Quarter: 2019Q1

REPORT INFORMATION
  Report Type: Spontaneous
  Country: US (occurrence: US)
  Receive Date: 20190123
  Receipt Date: 20190123
  Transmission Date: 20190417
  Serious: Yes (Hospitalization)
  Sender: FDA-Public Use
  Company Number: US-OTSUKA-2019_001565

PATIENT
  Age: 84 Year
  Sex: Female

DRUGS (1)
  1. SAMSCA [Suspect]
     Active Substance: TOLVAPTAN
     Indication: PRODUCT USED FOR UNKNOWN INDICATION
     Dosage: 15 MG, (TWICE WEEKLY)
     Route: 065
     Dates: start: 201812, end: 201901

REACTIONS (3)
  - Blood creatinine increased [Unknown]
  - Inappropriate schedule of product administration [Unknown]
  - Blood sodium decreased [Not Recovered/Not Resolved]

NARRATIVE: CASE EVENT DATE: 201812
